FAERS Safety Report 9876738 (Version 2)
Quarter: 2014Q1

REPORT INFORMATION
  Report Type: Other
  Country: US (occurrence: US)
  Receive Date: 20140206
  Receipt Date: 20140206
  Transmission Date: 20141002
  Serious: No
  Sender: FDA-Public Use
  Company Number: US-ACORDA-ACO_37846_2013

PATIENT
  Sex: Female

DRUGS (2)
  1. AMPYRA [Suspect]
     Indication: MUSCULOSKELETAL DISORDER
     Dosage: 10 MG, BID
     Route: 065
     Dates: start: 20130711
  2. AMPYRA [Suspect]
     Indication: OFF LABEL USE

REACTIONS (5)
  - Feeling cold [Unknown]
  - Therapeutic response unexpected [Unknown]
  - Nausea [Unknown]
  - Dizziness [Unknown]
  - Urinary tract infection [None]
